FAERS Safety Report 20411248 (Version 1)
Quarter: 2022Q1

REPORT INFORMATION
  Report Type: Spontaneous
  Country: US (occurrence: None)
  Receive Date: 20220201
  Receipt Date: 20220201
  Transmission Date: 20220423
  Serious: Yes (Hospitalization)
  Sender: FDA-Public Use
  Company Number: None

PATIENT
  Age: 50 Year
  Sex: Male

DRUGS (1)
  1. SULFAMETHIZOLE\TRIMETHOPRIM [Suspect]
     Active Substance: SULFAMETHIZOLE\TRIMETHOPRIM
     Dosage: 1 TAB BID PO?
     Route: 048
     Dates: start: 20210922, end: 20211001

REACTIONS (2)
  - Stevens-Johnson syndrome [None]
  - Anaphylactic reaction [None]

NARRATIVE: CASE EVENT DATE: 20211001
